FAERS Safety Report 5978804-3 (Version None)
Quarter: 2008Q4

REPORT INFORMATION
  Report Type: 
  Country: None (occurrence: None)
  Receive Date: 20081204
  Receipt Date: 20081126
  Transmission Date: 20090506
  Serious: Yes (Hospitalization, Other)
  Sender: FDA-Public Use
  Company Number: PHHY2008FR29971

PATIENT
  Sex: Female

DRUGS (6)
  1. TRILEPTAL [Suspect]
     Dosage: 600 MG, QD
  2. EFFEXOR [Suspect]
     Dosage: 250 MG PER DAY
  3. TERCIAN [Concomitant]
  4. ZYPREXA [Concomitant]
  5. IMOVANE [Concomitant]
     Dosage: 7.5 MG DAILY
  6. LEVOTHYROX [Concomitant]
     Dosage: 100 UG DAILY

REACTIONS (7)
  - CONVULSION [None]
  - DEPRESSION [None]
  - FLUID OVERLOAD [None]
  - HYPOKALAEMIA [None]
  - HYPONATRAEMIA [None]
  - LOSS OF CONSCIOUSNESS [None]
  - VOMITING [None]
